FAERS Safety Report 8478126-5 (Version None)
Quarter: 2012Q2

REPORT INFORMATION
  Report Type: 
  Country: None (occurrence: None)
  Receive Date: 20120629
  Receipt Date: 20120621
  Transmission Date: 20120825
  Serious: Yes (Hospitalization)
  Sender: FDA-Public Use
  Company Number: FR-PFIZER INC-2011196356

PATIENT
  Age: 41 Year
  Sex: Male

DRUGS (18)
  1. SOLUTIONS FOR PARENTERAL NUTRITION [Suspect]
     Dosage: UNK
     Route: 042
     Dates: start: 20110701, end: 20110704
  2. CLOZAPINE [Concomitant]
     Dosage: 500 MG
  3. PANTOPRAZOLE [Suspect]
     Dosage: 40 MG, DAILY
     Route: 042
     Dates: start: 20110701
  4. CEFTRIAXONE [Suspect]
     Dosage: 2 GM
     Route: 042
     Dates: start: 20110701
  5. CLONAZEPAM [Concomitant]
     Dosage: 0.25 DOSAGE FORMS
  6. CERNEVIT-12 [Suspect]
     Dosage: UNK
     Route: 042
     Dates: start: 20110701, end: 20110704
  7. PROZAC [Concomitant]
     Dosage: 40 MG
  8. IMURAN [Concomitant]
     Dosage: UNK
  9. OMEPRAZOLE [Concomitant]
     Dosage: 20MG
  10. ACETAMINOPHEN [Suspect]
     Dosage: 1 G, UNK
     Route: 042
     Dates: start: 20110701
  11. KETOPROFEN [Concomitant]
     Dosage: UNK
  12. AMINO ACIDS [Suspect]
     Dosage: UNK
     Route: 042
     Dates: start: 20110701, end: 20110704
  13. OFLOXACIN [Suspect]
     Dosage: 600 MG
     Route: 042
     Dates: start: 20110701
  14. XANAX [Concomitant]
     Dosage: 0.75 MG
  15. FOLIC ACID [Concomitant]
     Dosage: UNK
  16. METHYLPREDNISOLONE [Suspect]
     Dosage: 40 MG
     Route: 042
     Dates: start: 20110701, end: 20110705
  17. FLUCONAZOLE [Suspect]
     Dosage: 400 MG
     Route: 042
     Dates: start: 20110701, end: 20110704
  18. FERROUS FUMARATE [Concomitant]
     Dosage: UNK

REACTIONS (4)
  - DEEP VEIN THROMBOSIS [None]
  - INJECTION SITE INDURATION [None]
  - THROMBOPHLEBITIS SUPERFICIAL [None]
  - INFLAMMATION [None]
